FAERS Safety Report 24156741 (Version 1)
Quarter: 2024Q3

REPORT INFORMATION
  Report Type: Spontaneous
  Country: US (occurrence: None)
  Receive Date: 20240730
  Receipt Date: 20240730
  Transmission Date: 20241017
  Serious: Yes (unspecified)
  Sender: Public
  Company Number: None

PATIENT
  Age: 81 Year
  Sex: Male

DRUGS (1)
  1. RETEVMO [Suspect]
     Active Substance: SELPERCATINIB
     Indication: Lung neoplasm malignant
     Dosage: FREQUENCY : TWICE A DAY;?

REACTIONS (9)
  - Aspartate aminotransferase increased [None]
  - Alanine aminotransferase increased [None]
  - Fatigue [None]
  - Muscular weakness [None]
  - Pain in extremity [None]
  - Abdominal pain [None]
  - Diarrhoea [None]
  - Faeces discoloured [None]
  - Fatigue [None]
